FAERS Safety Report 16613681 (Version 1)
Quarter: 2019Q3

REPORT INFORMATION
  Report Type: Spontaneous
  Country: US (occurrence: US)
  Receive Date: 20190722
  Receipt Date: 20190722
  Transmission Date: 20191004
  Serious: Yes (Hospitalization)
  Sender: FDA-Public Use
  Company Number: None

PATIENT
  Age: 31 Year
  Sex: Female
  Weight: 81.9 kg

DRUGS (8)
  1. DAILY LIVER FORMULA [Concomitant]
  2. GADAVIST [Suspect]
     Active Substance: GADOBUTROL
     Indication: SCAN WITH CONTRAST
     Dates: start: 20190722, end: 20190722
  3. LIOTHYRONINE SODIUM. [Concomitant]
     Active Substance: LIOTHYRONINE SODIUM
  4. SELENIUM [Concomitant]
     Active Substance: SELENIUM
  5. NORETHINDRONE. [Concomitant]
     Active Substance: NORETHINDRONE
  6. MULTI VITAMIN NO IRON [Concomitant]
  7. SYNTHROID [Concomitant]
     Active Substance: LEVOTHYROXINE SODIUM
  8. VIT D [Concomitant]
     Active Substance: VITAMIN D NOS

REACTIONS (3)
  - Nausea [None]
  - Diarrhoea [None]
  - Dizziness [None]

NARRATIVE: CASE EVENT DATE: 20190722
